FAERS Safety Report 7204830-2 (Version None)
Quarter: 2010Q4

REPORT INFORMATION
  Report Type: 
  Country: None (occurrence: None)
  Receive Date: 20101230
  Receipt Date: 20101220
  Transmission Date: 20110411
  Serious: Yes (Death, Other)
  Sender: FDA-Public Use
  Company Number: JP-TEVA-261241ISR

PATIENT
  Sex: Male

DRUGS (14)
  1. CARBOPLATIN [Suspect]
     Indication: T-CELL LYMPHOMA REFRACTORY
  2. CISPLATIN [Suspect]
     Indication: T-CELL LYMPHOMA REFRACTORY
  3. CYCLOPHOSPHAMIDE [Suspect]
     Indication: T-CELL LYMPHOMA REFRACTORY
  4. VINCRISTINE [Suspect]
     Indication: T-CELL LYMPHOMA REFRACTORY
  5. DOXORUBICIN [Suspect]
     Indication: T-CELL LYMPHOMA REFRACTORY
  6. DEXAMETHASONE [Suspect]
     Indication: T-CELL LYMPHOMA REFRACTORY
  7. DEXAMETHASONE [Suspect]
  8. METHOTREXATE [Suspect]
     Indication: T-CELL LYMPHOMA REFRACTORY
  9. CYTARABINE [Suspect]
     Indication: T-CELL LYMPHOMA REFRACTORY
  10. ETOPOSIDE [Suspect]
     Indication: T-CELL LYMPHOMA REFRACTORY
  11. PREDNISOLONE [Suspect]
     Indication: T-CELL LYMPHOMA REFRACTORY
  12. IFOSFAMIDE [Suspect]
     Indication: T-CELL LYMPHOMA REFRACTORY
  13. GEMCITABINE [Suspect]
     Indication: T-CELL LYMPHOMA REFRACTORY
  14. IRINOTECAN [Suspect]
     Indication: T-CELL LYMPHOMA REFRACTORY

REACTIONS (5)
  - DISEASE PROGRESSION [None]
  - DYSPNOEA [None]
  - POLYOMAVIRUS-ASSOCIATED NEPHROPATHY [None]
  - PYREXIA [None]
  - RENAL FAILURE ACUTE [None]
